FAERS Safety Report 25940105 (Version 1)
Quarter: 2025Q4

REPORT INFORMATION
  Report Type: Spontaneous
  Country: AU (occurrence: AU)
  Receive Date: 20251020
  Receipt Date: 20251020
  Transmission Date: 20260117
  Serious: Yes (Life-Threatening, Hospitalization)
  Sender: MYLAN
  Company Number: AU-MYLANLABS-2025M1089067

PATIENT
  Age: 68 Year
  Sex: Female

DRUGS (48)
  1. AMLODIPINE [Suspect]
     Active Substance: AMLODIPINE BESYLATE
     Indication: Hypertension
     Dosage: 5 MILLIGRAM
  2. AMLODIPINE [Suspect]
     Active Substance: AMLODIPINE BESYLATE
     Dosage: 5 MILLIGRAM
     Route: 065
  3. AMLODIPINE [Suspect]
     Active Substance: AMLODIPINE BESYLATE
     Dosage: 5 MILLIGRAM
     Route: 065
  4. AMLODIPINE [Suspect]
     Active Substance: AMLODIPINE BESYLATE
     Dosage: 5 MILLIGRAM
  5. METOPROLOL [Suspect]
     Active Substance: METOPROLOL
     Indication: Atrial fibrillation
     Dosage: 50 MILLIGRAM
  6. METOPROLOL [Suspect]
     Active Substance: METOPROLOL
     Dosage: 50 MILLIGRAM
     Route: 048
  7. METOPROLOL [Suspect]
     Active Substance: METOPROLOL
     Dosage: 50 MILLIGRAM
     Route: 048
  8. METOPROLOL [Suspect]
     Active Substance: METOPROLOL
     Dosage: 50 MILLIGRAM
  9. SOTALOL [Suspect]
     Active Substance: SOTALOL
     Indication: Atrial fibrillation
     Dosage: 80 MILLIGRAM, BID
  10. SOTALOL [Suspect]
     Active Substance: SOTALOL
     Dosage: 80 MILLIGRAM, BID
     Route: 065
  11. SOTALOL [Suspect]
     Active Substance: SOTALOL
     Dosage: 80 MILLIGRAM, BID
     Route: 065
  12. SOTALOL [Suspect]
     Active Substance: SOTALOL
     Dosage: 80 MILLIGRAM, BID
  13. OSIMERTINIB [Suspect]
     Active Substance: OSIMERTINIB
     Indication: Non-small cell lung cancer metastatic
     Dosage: 80 MILLIGRAM, QD
  14. OSIMERTINIB [Suspect]
     Active Substance: OSIMERTINIB
     Dosage: 80 MILLIGRAM, QD
     Route: 065
  15. OSIMERTINIB [Suspect]
     Active Substance: OSIMERTINIB
     Dosage: 80 MILLIGRAM, QD
     Route: 065
  16. OSIMERTINIB [Suspect]
     Active Substance: OSIMERTINIB
     Dosage: 80 MILLIGRAM, QD
  17. APIXABAN [Concomitant]
     Active Substance: APIXABAN
     Indication: Atrial fibrillation
     Dosage: 5 MILLIGRAM, BID
  18. APIXABAN [Concomitant]
     Active Substance: APIXABAN
     Dosage: 5 MILLIGRAM, BID
     Route: 065
  19. APIXABAN [Concomitant]
     Active Substance: APIXABAN
     Dosage: 5 MILLIGRAM, BID
     Route: 065
  20. APIXABAN [Concomitant]
     Active Substance: APIXABAN
     Dosage: 5 MILLIGRAM, BID
  21. ATORVASTATIN [Concomitant]
     Active Substance: ATORVASTATIN
     Indication: Coronary artery disease
     Dosage: 20 MILLIGRAM
  22. ATORVASTATIN [Concomitant]
     Active Substance: ATORVASTATIN
     Dosage: 20 MILLIGRAM
     Route: 065
  23. ATORVASTATIN [Concomitant]
     Active Substance: ATORVASTATIN
     Dosage: 20 MILLIGRAM
     Route: 065
  24. ATORVASTATIN [Concomitant]
     Active Substance: ATORVASTATIN
     Dosage: 20 MILLIGRAM
  25. PERINDOPRIL ARGININE [Concomitant]
     Active Substance: PERINDOPRIL ARGININE
     Indication: Hypertension
     Dosage: 5 MILLIGRAM
  26. PERINDOPRIL ARGININE [Concomitant]
     Active Substance: PERINDOPRIL ARGININE
     Dosage: 5 MILLIGRAM
     Route: 065
  27. PERINDOPRIL ARGININE [Concomitant]
     Active Substance: PERINDOPRIL ARGININE
     Dosage: 5 MILLIGRAM
     Route: 065
  28. PERINDOPRIL ARGININE [Concomitant]
     Active Substance: PERINDOPRIL ARGININE
     Dosage: 5 MILLIGRAM
  29. LEVOTHYROXINE [Concomitant]
     Active Substance: LEVOTHYROXINE
     Indication: Product used for unknown indication
     Dosage: 150 MICROGRAM
  30. LEVOTHYROXINE [Concomitant]
     Active Substance: LEVOTHYROXINE
     Dosage: 150 MICROGRAM
     Route: 065
  31. LEVOTHYROXINE [Concomitant]
     Active Substance: LEVOTHYROXINE
     Dosage: 150 MICROGRAM
     Route: 065
  32. LEVOTHYROXINE [Concomitant]
     Active Substance: LEVOTHYROXINE
     Dosage: 150 MICROGRAM
  33. MAGNESIUM SULFATE [Concomitant]
     Active Substance: MAGNESIUM SULFATE
     Indication: Atrial fibrillation
     Dosage: 20 MILLIMOLE
  34. MAGNESIUM SULFATE [Concomitant]
     Active Substance: MAGNESIUM SULFATE
     Dosage: 20 MILLIMOLE
     Route: 042
  35. MAGNESIUM SULFATE [Concomitant]
     Active Substance: MAGNESIUM SULFATE
     Dosage: 20 MILLIMOLE
     Route: 042
  36. MAGNESIUM SULFATE [Concomitant]
     Active Substance: MAGNESIUM SULFATE
     Dosage: 20 MILLIMOLE
  37. DIGOXIN [Concomitant]
     Active Substance: DIGOXIN
     Indication: Atrial fibrillation
     Dosage: 1000 MICROGRAM
  38. DIGOXIN [Concomitant]
     Active Substance: DIGOXIN
     Dosage: 1000 MICROGRAM
     Route: 048
  39. DIGOXIN [Concomitant]
     Active Substance: DIGOXIN
     Dosage: 1000 MICROGRAM
     Route: 048
  40. DIGOXIN [Concomitant]
     Active Substance: DIGOXIN
     Dosage: 1000 MICROGRAM
  41. SACUBITRIL\VALSARTAN [Concomitant]
     Active Substance: SACUBITRIL\VALSARTAN
     Indication: Hypertension
     Dosage: UNK
  42. SACUBITRIL\VALSARTAN [Concomitant]
     Active Substance: SACUBITRIL\VALSARTAN
     Dosage: UNK
     Route: 065
  43. SACUBITRIL\VALSARTAN [Concomitant]
     Active Substance: SACUBITRIL\VALSARTAN
     Dosage: UNK
     Route: 065
  44. SACUBITRIL\VALSARTAN [Concomitant]
     Active Substance: SACUBITRIL\VALSARTAN
     Dosage: UNK
  45. DAPAGLIFLOZIN [Concomitant]
     Active Substance: DAPAGLIFLOZIN
     Indication: Hypertension
     Dosage: UNK
  46. DAPAGLIFLOZIN [Concomitant]
     Active Substance: DAPAGLIFLOZIN
     Dosage: UNK
     Route: 065
  47. DAPAGLIFLOZIN [Concomitant]
     Active Substance: DAPAGLIFLOZIN
     Dosage: UNK
     Route: 065
  48. DAPAGLIFLOZIN [Concomitant]
     Active Substance: DAPAGLIFLOZIN
     Dosage: UNK

REACTIONS (6)
  - Electrocardiogram QT prolonged [Recovered/Resolved]
  - Bradycardia [Recovered/Resolved]
  - Left ventricular dysfunction [Unknown]
  - Torsade de pointes [Unknown]
  - Circulatory collapse [Unknown]
  - Ventricular tachycardia [Unknown]
